FAERS Safety Report 5815881-4 (Version None)
Quarter: 2008Q3

REPORT INFORMATION
  Report Type: 
  Country: None (occurrence: None)
  Receive Date: 20080716
  Receipt Date: 20071017
  Transmission Date: 20090109
  Serious: Yes (Other)
  Sender: FDA-Public Use
  Company Number: WWISSUE-122

PATIENT
  Sex: Male

DRUGS (1)
  1. LISINOPRIL [Suspect]

REACTIONS (1)
  - PHARMACEUTICAL PRODUCT COMPLAINT [None]
